FAERS Safety Report 12177811 (Version 2)
Quarter: 2020Q2

REPORT INFORMATION
  Report Type: Spontaneous
  Country: CA (occurrence: CA)
  Receive Date: 20160315
  Receipt Date: 20200611
  Transmission Date: 20200713
  Serious: Yes (Other)
  Sender: FDA-Public Use
  Company Number: CA-009507513-1603CAN005610

PATIENT
  Age: 26 Year
  Sex: Male

DRUGS (1)
  1. PROPECIA [Suspect]
     Active Substance: FINASTERIDE
     Indication: ANDROGENETIC ALOPECIA
     Dosage: 1 MILLIGRAM, 1 EVERY 1 (DAYS)
     Route: 048
     Dates: start: 20000115, end: 20041001

REACTIONS (27)
  - Angiopathy [Unknown]
  - Blood magnesium decreased [Unknown]
  - Blood oestrogen increased [Unknown]
  - Blood testosterone free decreased [Unknown]
  - Insomnia [Unknown]
  - Feminisation acquired [Unknown]
  - Hypogonadism [Unknown]
  - Peyronie^s disease [Unknown]
  - Psoriasis [Unknown]
  - Adrenal insufficiency [Unknown]
  - Male orgasmic disorder [Unknown]
  - Depression [Unknown]
  - Crohn^s disease [Unknown]
  - Hypothyroidism [Unknown]
  - Peau d^orange [Unknown]
  - Loss of libido [Unknown]
  - Cortisol decreased [Unknown]
  - Gynaecomastia [Unknown]
  - Metabolic disorder [Unknown]
  - Erectile dysfunction [Unknown]
  - Anxiety [Unknown]
  - Dermatitis [Unknown]
  - Suicidal ideation [Unknown]
  - Semen volume decreased [Unknown]
  - Hormone level abnormal [Unknown]
  - Scrotal erythema [Unknown]
  - Penile size reduced [Unknown]

NARRATIVE: CASE EVENT DATE: 20041001
